FAERS Safety Report 6124146-5 (Version None)
Quarter: 2009Q1

REPORT INFORMATION
  Report Type: 
  Country: None (occurrence: None)
  Receive Date: 20090316
  Receipt Date: 20090211
  Transmission Date: 20090719
  Serious: No
  Sender: FDA-Public Use
  Company Number: DSA_33206_2009

PATIENT
  Age: 47 Year
  Sex: Female

DRUGS (1)
  1. XENAZINE [Suspect]
     Indication: HUNTINGTON'S CHOREA
     Dosage: (1 DF BID)
     Dates: start: 20090201

REACTIONS (3)
  - DRUG DOSE OMISSION [None]
  - FATIGUE [None]
  - SOMNOLENCE [None]
